FAERS Safety Report 5285580-9 (Version None)
Quarter: 2007Q1

REPORT INFORMATION
  Report Type: 
  Country: None (occurrence: None)
  Receive Date: 20061229
  Receipt Date: 20060927
  Transmission Date: 20070707
  Serious: Yes (Other)
  Sender: FDA-Public Use
  Company Number: 2006UW18823

PATIENT
  Age: 64 Year
  Sex: Female
  Weight: 77.11 kg

DRUGS (11)
  1. CRESTOR [Suspect]
     Indication: HYPERCHOLESTEROLAEMIA
     Dosage: 10 MG PO
     Route: 048
     Dates: start: 20040101
  2. K-DUR 10 [Concomitant]
  3. PLAVIX [Concomitant]
  4. INSULIN [Concomitant]
  5. LASIX [Concomitant]
  6. DYAZIDE [Concomitant]
  7. ALLOPURINOL [Concomitant]
  8. OMEPRAZOLE [Concomitant]
  9. RANITIDINE [Concomitant]
  10. PAXIL [Concomitant]
  11. COQ10 [Concomitant]

REACTIONS (3)
  - BLOOD TEST ABNORMAL [None]
  - MYALGIA [None]
  - PAIN [None]
